FAERS Safety Report 24956834 (Version 3)
Quarter: 2025Q2

REPORT INFORMATION
  Report Type: Spontaneous
  Country: JP (occurrence: JP)
  Receive Date: 20250211
  Receipt Date: 20250410
  Transmission Date: 20250717
  Serious: Yes (Death, Hospitalization, Other)
  Sender: PFIZER
  Company Number: JP-PFIZER INC-202500027603

PATIENT
  Age: 80 Year
  Weight: 40 kg

DRUGS (6)
  1. AZITHROMYCIN DIHYDRATE [Suspect]
     Active Substance: AZITHROMYCIN DIHYDRATE
     Indication: Pneumonia aspiration
     Dosage: 500 MG, 1X/DAY
     Route: 048
     Dates: start: 20250131, end: 20250202
  2. TAMSULOSIN [Concomitant]
     Active Substance: TAMSULOSIN
     Dosage: 2 DF, 1X/DAY, AFTER BREAKFAST
     Dates: start: 20241004
  3. CILOSTAZOL [Concomitant]
     Active Substance: CILOSTAZOL
     Dosage: 1 DF, 2X/DAY, AFTER BREAKFAST AND AFTER DINNER
     Dates: start: 20241004
  4. HERBESSER [Concomitant]
     Active Substance: DILTIAZEM HYDROCHLORIDE
     Dosage: 1 DF, 2X/DAY, AFTER BREAKFAST AND AFTER DINNER
     Dates: start: 20241004
  5. ISOSORBIDE MONONITRATE [Concomitant]
     Active Substance: ISOSORBIDE MONONITRATE
     Dosage: 1 DF, 2X/DAY, AFTER BREAKFAST AND AFTER DINNER
     Dates: start: 20241004
  6. MOSAPRIDE [Concomitant]
     Active Substance: MOSAPRIDE
     Dosage: 1 DF, 2X/DAY, AFTER BREAKFAST AND AFTER DINNER
     Dates: start: 20241128

REACTIONS (4)
  - Hepatitis fulminant [Fatal]
  - Aspartate aminotransferase increased [Fatal]
  - Alanine aminotransferase increased [Fatal]
  - Cardiac failure congestive [Fatal]

NARRATIVE: CASE EVENT DATE: 20250203
